FAERS Safety Report 4733928-3 (Version None)
Quarter: 2005Q3

REPORT INFORMATION
  Report Type: 
  Country: None (occurrence: None)
  Receive Date: 20050721
  Receipt Date: 20050429
  Transmission Date: 20060218
  Serious: No
  Sender: FDA-Public Use
  Company Number: 2005SP000480

PATIENT
  Age: 42 Year
  Sex: Female

DRUGS (4)
  1. LUNESTA [Suspect]
     Dosage: 2 MG;HS; ORAL
     Route: 048
     Dates: start: 20050401
  2. GLUCOPHAGE [Concomitant]
  3. ORTHO TRI-CYCLEN [Concomitant]
  4. SYNTHROID [Concomitant]

REACTIONS (6)
  - APHASIA [None]
  - ASTHENIA [None]
  - DIZZINESS [None]
  - GAIT DISTURBANCE [None]
  - HANGOVER [None]
  - PARESIS [None]
